FAERS Safety Report 5580772-3 (Version None)
Quarter: 2007Q4

REPORT INFORMATION
  Report Type: 
  Country: None (occurrence: None)
  Receive Date: 20071227
  Receipt Date: 20071211
  Transmission Date: 20080405
  Serious: Yes (Hospitalization, Disabling)
  Sender: FDA-Public Use
  Company Number: CIP07002592

PATIENT
  Age: 53 Year
  Sex: Female

DRUGS (3)
  1. ACTONEL [Suspect]
     Indication: OSTEOPOROSIS
     Dosage: 1 TABLET ONCE A WEEK, ORAL
     Route: 048
     Dates: start: 20071001, end: 20071201
  2. METHOTREXATE [Concomitant]
  3. PREDNISONE [Concomitant]

REACTIONS (5)
  - ASTHENIA [None]
  - HAEMOLYTIC ANAEMIA [None]
  - JAUNDICE [None]
  - PALLOR [None]
  - TACHYCARDIA [None]
